FAERS Safety Report 14984906 (Version 3)
Quarter: 2018Q3

REPORT INFORMATION
  Report Type: Spontaneous
  Country: CN (occurrence: CN)
  Receive Date: 20180607
  Receipt Date: 20180717
  Transmission Date: 20181010
  Serious: Yes (Hospitalization, Other)
  Sender: FDA-Public Use
  Company Number: CN-BRACCO-2018CN03069

PATIENT
  Age: 55 Year
  Sex: Female

DRUGS (4)
  1. HUMULIN NOS [Concomitant]
     Active Substance: INSULIN HUMAN
     Dosage: UNK
  2. MULTIHANCE [Suspect]
     Active Substance: GADOBENATE DIMEGLUMINE
     Indication: NUCLEAR MAGNETIC RESONANCE IMAGING LIVER
     Dosage: 15 ML, SINGLE
     Route: 042
     Dates: start: 20171122, end: 20171122
  3. GLICLAZIDE [Concomitant]
     Active Substance: GLICLAZIDE
     Dosage: SUSTAINED RELEASED TABLETS
  4. METFORMIN [Concomitant]
     Active Substance: METFORMIN HYDROCHLORIDE
     Dosage: UNK

REACTIONS (6)
  - Vomiting [Unknown]
  - Dizziness [Unknown]
  - Blood pressure increased [Unknown]
  - Deafness [Not Recovered/Not Resolved]
  - Nausea [Unknown]
  - Pallor [Unknown]

NARRATIVE: CASE EVENT DATE: 20171122
